FAERS Safety Report 8920380 (Version 1)
Quarter: 2012Q4

REPORT INFORMATION
  Report Type: 
  Country: GB (occurrence: GB)
  Receive Date: 20121122
  Receipt Date: 20121122
  Transmission Date: 20130627
  Serious: Yes (Death, Hospitalization, Other)
  Sender: FDA-Public Use
  Company Number: PHHY2012GB105810

PATIENT
  Age: 91 Year
  Sex: Male

DRUGS (7)
  1. AMIODARONE [Suspect]
     Indication: VENTRICULAR TACHYCARDIA
     Dosage: 200 mg, QD
     Route: 048
     Dates: start: 201012, end: 20121024
  2. SIMVASTATIN [Suspect]
     Route: 048
     Dates: end: 20121024
  3. FUROSEMIDE [Concomitant]
  4. DOXAZOSIN [Concomitant]
  5. ASPIRIN [Concomitant]
  6. BISOPROLOL [Concomitant]
  7. PERINDOPRIL [Concomitant]

REACTIONS (2)
  - Pulmonary fibrosis [Fatal]
  - Pneumonia [Unknown]
